FAERS Safety Report 9906636 (Version 2)
Quarter: 2014Q2

REPORT INFORMATION
  Report Type: Report from Study
  Country: ES (occurrence: ES)
  Receive Date: 20140218
  Receipt Date: 20140414
  Transmission Date: 20141212
  Serious: Yes (Death, Life-Threatening, Disabling)
  Sender: FDA-Public Use
  Company Number: ES-CELGENEUS-144-C4047-14022004

PATIENT
  Age: 74 Year
  Sex: Male
  Weight: 63.3 kg

DRUGS (5)
  1. CC-4047 [Suspect]
     Indication: PLASMA CELL MYELOMA
     Dosage: 4 MILLIGRAM
     Route: 048
     Dates: start: 20131118, end: 20131215
  2. CC-4047 [Suspect]
     Dosage: 4 MILLIGRAM
     Route: 048
     Dates: start: 20131216, end: 20140112
  3. DEXAMETHASONE [Suspect]
     Indication: PLASMA CELL MYELOMA
     Route: 048
     Dates: start: 20131118, end: 20131215
  4. DEXAMETHASONE [Suspect]
     Route: 048
     Dates: start: 20131216, end: 20140209
  5. CLEXANE [Concomitant]
     Indication: PROPHYLAXIS
     Dosage: 90 MILLIGRAM
     Route: 058
     Dates: start: 20131022

REACTIONS (1)
  - General physical health deterioration [Fatal]
